FAERS Safety Report 19956646 (Version 1)
Quarter: 2021Q4

REPORT INFORMATION
  Report Type: Spontaneous
  Country: US (occurrence: US)
  Receive Date: 20211014
  Receipt Date: 20211014
  Transmission Date: 20220303
  Serious: No
  Sender: FDA-Public Use
  Company Number: US-BLUEPRINT MEDICINES CORPORATION-SP-US-2021-001860

PATIENT
  Sex: Male

DRUGS (2)
  1. AYVAKIT [Suspect]
     Active Substance: AVAPRITINIB
     Indication: Gastrointestinal stromal tumour
     Dosage: 100MG ALTERNATING WITH 200MG EVERY OTHER DAY
     Route: 048
     Dates: start: 20210521
  2. AYVAKIT [Suspect]
     Active Substance: AVAPRITINIB
     Dosage: 100MG ALTERNATING WITH 200MG EVERY OTHER DAY
     Route: 048
     Dates: start: 20210521

REACTIONS (1)
  - Off label use [Unknown]
